FAERS Safety Report 14572155 (Version 2)
Quarter: 2018Q1

REPORT INFORMATION
  Report Type: Report from Study
  Country: AU (occurrence: AU)
  Receive Date: 20180226
  Receipt Date: 20180329
  Transmission Date: 20180509
  Serious: Yes (Other)
  Sender: FDA-Public Use
  Company Number: AU-MYLANLABS-2016M1034047

PATIENT
  Age: 34 Year
  Sex: Male

DRUGS (3)
  1. LITHIUM. [Concomitant]
     Active Substance: LITHIUM
     Indication: AFFECTIVE DISORDER
     Dosage: 250 MG, BID
     Route: 048
     Dates: start: 2005
  2. CLOZARIL [Suspect]
     Active Substance: CLOZAPINE
     Indication: SCHIZOPHRENIA
     Dosage: 200 MG, HS
     Route: 048
     Dates: start: 20080115
  3. ZOLOFT [Concomitant]
     Active Substance: SERTRALINE HYDROCHLORIDE
     Indication: AFFECTIVE DISORDER
     Dosage: 100 MG, UNK
     Route: 048
     Dates: start: 2005

REACTIONS (8)
  - Lower respiratory tract infection [Unknown]
  - Protein total decreased [Not Recovered/Not Resolved]
  - Thrombocytopenia [Recovering/Resolving]
  - Mean platelet volume increased [Recovered/Resolved]
  - Gamma-glutamyltransferase increased [Recovered/Resolved]
  - Lymphocyte count decreased [Recovered/Resolved]
  - Blood triglycerides increased [Not Recovered/Not Resolved]
  - Antipsychotic drug level below therapeutic [Not Recovered/Not Resolved]

NARRATIVE: CASE EVENT DATE: 20081029
